FAERS Safety Report 9753794 (Version 3)
Quarter: 2015Q3

REPORT INFORMATION
  Report Type: Spontaneous
  Country: US (occurrence: US)
  Receive Date: 20131213
  Receipt Date: 20150805
  Transmission Date: 20151125
  Serious: No
  Sender: FDA-Public Use
  Company Number: US-GILEAD-2010-0026673

PATIENT
  Age: 75 Year
  Sex: Female
  Weight: 70.31 kg

DRUGS (12)
  1. PLAVIX [Concomitant]
     Active Substance: CLOPIDOGREL BISULFATE
  2. CENTRUM [Concomitant]
     Active Substance: VITAMINS
  3. LETAIRIS [Suspect]
     Active Substance: AMBRISENTAN
     Indication: PULMONARY ARTERIAL HYPERTENSION
     Route: 048
     Dates: start: 20090806
  4. OXYGEN. [Concomitant]
     Active Substance: OXYGEN
  5. LIPITOR [Concomitant]
     Active Substance: ATORVASTATIN CALCIUM
  6. LISINOPRIL. [Concomitant]
     Active Substance: LISINOPRIL
  7. LASIX [Concomitant]
     Active Substance: FUROSEMIDE
  8. ALPRAZOLAM. [Concomitant]
     Active Substance: ALPRAZOLAM
  9. PROCRIT [Concomitant]
     Active Substance: ERYTHROPOIETIN
  10. COREG [Concomitant]
     Active Substance: CARVEDILOL
  11. PROCARDIA XL [Concomitant]
     Active Substance: NIFEDIPINE
  12. IRON [Concomitant]
     Active Substance: IRON

REACTIONS (1)
  - Nasal congestion [Unknown]
